FAERS Safety Report 7495962-2 (Version None)
Quarter: 2011Q2

REPORT INFORMATION
  Report Type: 
  Country: None (occurrence: None)
  Receive Date: 20110523
  Receipt Date: 20110511
  Transmission Date: 20111010
  Serious: Yes (Hospitalization)
  Sender: FDA-Public Use
  Company Number: JP-PFIZER INC-2011109211

PATIENT
  Age: 45 Year
  Sex: Female

DRUGS (4)
  1. CAMPTOSAR [Suspect]
     Indication: LARGE INTESTINE CARCINOMA
     Dosage: UNK
     Route: 041
     Dates: start: 20110510, end: 20110510
  2. LEUCOVORIN CALCIUM [Suspect]
     Indication: LARGE INTESTINE CARCINOMA
     Dosage: UNK
     Route: 041
     Dates: start: 20110510, end: 20110510
  3. FLUOROURACIL [Suspect]
     Dosage: D 1-2
     Route: 041
     Dates: start: 20110510, end: 20110510
  4. FLUOROURACIL [Suspect]
     Indication: LARGE INTESTINE CARCINOMA
     Dosage: UNK
     Route: 040
     Dates: start: 20110510, end: 20110510

REACTIONS (2)
  - HYPOAESTHESIA [None]
  - CONVULSION [None]
